FAERS Safety Report 5259217-9 (Version None)
Quarter: 2007Q1

REPORT INFORMATION
  Report Type: 
  Country: None (occurrence: None)
  Receive Date: 20070308
  Receipt Date: 20070226
  Transmission Date: 20070707
  Serious: Yes (Other)
  Sender: FDA-Public Use
  Company Number: JP-PFIZER INC-2007014056

PATIENT

DRUGS (11)
  1. GABAPEN [Suspect]
     Indication: EPILEPSY
     Dosage: DAILY DOSE:1200MG
     Route: 048
     Dates: start: 20070202, end: 20070201
  2. GABAPEN [Suspect]
     Indication: PARTIAL SEIZURES
  3. ANTIEPILEPTICS [Concomitant]
  4. CLOBAZAM [Concomitant]
     Route: 048
  5. ALEVIATIN [Concomitant]
     Route: 048
  6. TEGRETOL [Concomitant]
     Route: 048
  7. CERCINE [Concomitant]
  8. NITRAZEPAM [Concomitant]
     Route: 048
  9. RIVOTRIL [Concomitant]
     Route: 048
  10. AMOBAN [Concomitant]
     Route: 048
  11. DEPAS [Concomitant]
     Route: 048

REACTIONS (3)
  - EPILEPSY [None]
  - FACE INJURY [None]
  - FALL [None]
